FAERS Safety Report 7432888-4 (Version None)
Quarter: 2011Q2

REPORT INFORMATION
  Report Type: 
  Country: None (occurrence: None)
  Receive Date: 20110422
  Receipt Date: 20110418
  Transmission Date: 20111010
  Serious: Yes (Death)
  Sender: FDA-Public Use
  Company Number: US-ASTRAZENECA-2011SE10152

PATIENT
  Age: 749 Month
  Sex: Female

DRUGS (12)
  1. VESICARE [Concomitant]
  2. PREDNISONE [Concomitant]
  3. POTASSIUM [Concomitant]
  4. LASIX [Concomitant]
  5. ATARAX [Concomitant]
  6. HYDROCODONE BITARTRATE [Concomitant]
  7. SEROQUEL XR [Suspect]
     Indication: DEPRESSION
     Route: 048
     Dates: start: 20100225
  8. ARAVA [Concomitant]
  9. NOVOLIN N [Concomitant]
     Indication: DIABETES MELLITUS
  10. SEROQUEL XR [Suspect]
     Indication: GENERALISED ANXIETY DISORDER
     Route: 048
     Dates: start: 20100225
  11. NEURONTIN [Concomitant]
  12. CELEXA [Concomitant]

REACTIONS (2)
  - PNEUMONIA [None]
  - DEATH [None]
